FAERS Safety Report 7427829-X (Version None)
Quarter: 2011Q2

REPORT INFORMATION
  Report Type: 
  Country: None (occurrence: None)
  Receive Date: 20110421
  Receipt Date: 20110421
  Transmission Date: 20111010
  Serious: Yes (Other)
  Sender: FDA-Public Use
  Company Number: CA-ROXANE LABORATORIES, INC.-2011-DE-02420GD

PATIENT
  Age: 50 Year
  Sex: Female

DRUGS (5)
  1. SERTRALINE [Suspect]
     Indication: DEPRESSION
     Dosage: 200 MG
  2. QUETIAPINE [Suspect]
     Indication: SCHIZOPHRENIA
     Dosage: 800 MG
  3. QUETIAPINE [Suspect]
     Indication: HALLUCINATION, AUDITORY
     Dosage: 900 MG
  4. QUETIAPINE [Suspect]
     Indication: DELUSION
  5. PHENYTOIN [Concomitant]
     Indication: EPILEPSY

REACTIONS (1)
  - SOMNAMBULISM [None]
